FAERS Safety Report 10237832 (Version 1)
Quarter: 2014Q2

REPORT INFORMATION
  Report Type: Spontaneous
  Country: US (occurrence: US)
  Receive Date: 20140616
  Receipt Date: 20140616
  Transmission Date: 20141212
  Serious: Yes (Other)
  Sender: FDA-Public Use
  Company Number: US-BIOGENIDEC-2014BI056015

PATIENT
  Sex: Female

DRUGS (3)
  1. TYSABRI [Suspect]
     Indication: MULTIPLE SCLEROSIS
     Route: 042
     Dates: start: 20120802
  2. TRAMADOL [Concomitant]
  3. NAPROXEN [Concomitant]

REACTIONS (2)
  - Dysfunctional uterine bleeding [Recovered/Resolved]
  - Headache [Recovered/Resolved]
